FAERS Safety Report 24593697 (Version 2)
Quarter: 2024Q4

REPORT INFORMATION
  Report Type: Spontaneous
  Country: US (occurrence: US)
  Receive Date: 20241108
  Receipt Date: 20241125
  Transmission Date: 20250114
  Serious: Yes (Other)
  Sender: REVANCE THERAPEUTICS
  Company Number: US-REVANCE THERAPEUTICS INC.-US-REV-2024-000623

PATIENT

DRUGS (1)
  1. DAXIBOTULINUMTOXIN A-LANM [Suspect]
     Active Substance: DAXIBOTULINUMTOXIN A-LANM
     Indication: Skin wrinkling
     Dosage: 100 UNITS: GLABELLA (32 UNITS) , FOREHEAD (40 UNITS), LATERAL CANTHAL LINES (28 UNITS)
     Route: 065
     Dates: start: 20241004

REACTIONS (6)
  - Neuromuscular toxicity [Recovered/Resolved]
  - Injection site swelling [Recovered/Resolved]
  - Injection site inflammation [Recovered/Resolved]
  - Eyelid ptosis [Recovered/Resolved]
  - Underdose [Unknown]
  - Off label use [Unknown]

NARRATIVE: CASE EVENT DATE: 20241001
